FAERS Safety Report 11447781 (Version 1)
Quarter: 2015Q3

REPORT INFORMATION
  Report Type: Spontaneous
  Country: US (occurrence: US)
  Receive Date: 20150831
  Receipt Date: 20150831
  Transmission Date: 20151125
  Serious: No
  Sender: FDA-Public Use
  Company Number: US-ELI_LILLY_AND_COMPANY-US200904002796

PATIENT
  Age: 45 Year
  Sex: Female

DRUGS (3)
  1. ALCOHOL. [Concomitant]
     Active Substance: ALCOHOL
     Dosage: UNK, EACH EVENING
  2. CYMBALTA [Suspect]
     Active Substance: DULOXETINE HYDROCHLORIDE
  3. AMBIEN [Concomitant]
     Active Substance: ZOLPIDEM TARTRATE

REACTIONS (1)
  - Memory impairment [Unknown]
